FAERS Safety Report 11319162 (Version 1)
Quarter: 2015Q3

REPORT INFORMATION
  Report Type: Report from Study
  Country: US (occurrence: None)
  Receive Date: 20150727
  Receipt Date: 20150727
  Transmission Date: 20151125
  Serious: Yes (Hospitalization)
  Sender: FDA-Public Use
  Company Number: 2015M1023863

PATIENT
  Age: 71 Year
  Weight: 63.9 kg

DRUGS (1)
  1. ALBUTEROL (SALBUTAMOL) UNKNOWN [Suspect]
     Active Substance: ALBUTEROL

REACTIONS (3)
  - Dyspnoea [None]
  - Non-small cell lung cancer [None]
  - Malignant neoplasm progression [None]

NARRATIVE: CASE EVENT DATE: 20150705
